FAERS Safety Report 11977197 (Version 2)
Quarter: 2016Q1

REPORT INFORMATION
  Report Type: Report from Study
  Country: BR (occurrence: BR)
  Receive Date: 20160129
  Receipt Date: 20160324
  Transmission Date: 20160526
  Serious: Yes (Death, Hospitalization)
  Sender: FDA-Public Use
  Company Number: PHHY2016BR011421

PATIENT
  Sex: Male
  Weight: 39 kg

DRUGS (1)
  1. EXJADE [Suspect]
     Active Substance: DEFERASIROX
     Indication: IRON OVERLOAD
     Dosage: 1 DF, QD
     Route: 048

REACTIONS (3)
  - Death [Fatal]
  - Immunodeficiency [Unknown]
  - Pyrexia [Unknown]
